FAERS Safety Report 7386175-3 (Version None)
Quarter: 2011Q1

REPORT INFORMATION
  Report Type: 
  Country: None (occurrence: None)
  Receive Date: 20110323
  Receipt Date: 20110321
  Transmission Date: 20110831
  Serious: Yes (Life-Threatening, Hospitalization)
  Sender: FDA-Public Use
  Company Number: 2011SP008367

PATIENT
  Age: 78 Year
  Sex: Female

DRUGS (13)
  1. DISTRANEURIN [Concomitant]
  2. PERENTEROL [Concomitant]
  3. DISTRANEURIN [Concomitant]
  4. DAFALGAN [Concomitant]
  5. KEPPRA [Concomitant]
  6. TOPAMAX [Concomitant]
  7. ASPIRIN [Concomitant]
  8. LIQUEMINE (HEPARIN SODIUM /00027704/) [Concomitant]
     Indication: ANTICOAGULANT THERAPY
     Dosage: 17000 IU;QD;INDRP
     Route: 041
     Dates: end: 20101223
  9. SINTROM [Suspect]
     Indication: ANTICOAGULANT THERAPY
     Dosage: 2 MG;PRN
     Route: 051
     Dates: end: 20101222
  10. RISPERDAL [Concomitant]
  11. REMERON [Suspect]
     Indication: PRODUCT USED FOR UNKNOWN INDICATION
     Dosage: 45 MG; PO
     Route: 048
     Dates: end: 20101201
  12. COUMADIN [Suspect]
     Indication: ANTICOAGULANT THERAPY
     Dosage: 5 MG;QD
     Dates: start: 19950101, end: 20101201
  13. FLAGYL [Concomitant]
     Indication: PRODUCT USED FOR UNKNOWN INDICATION
     Dosage: 500 MG;TID;PO
     Route: 048
     Dates: end: 20101230

REACTIONS (8)
  - HAEMORRHAGE INTRACRANIAL [None]
  - HEAD INJURY [None]
  - ALTERED STATE OF CONSCIOUSNESS [None]
  - DIARRHOEA [None]
  - CLOSTRIDIUM TEST POSITIVE [None]
  - GRAND MAL CONVULSION [None]
  - SUBDURAL HAEMATOMA [None]
  - DRUG LEVEL INCREASED [None]
